FAERS Safety Report 9513450 (Version 1)
Quarter: 2013Q3

REPORT INFORMATION
  Report Type: Spontaneous
  Country: US (occurrence: US)
  Receive Date: 20130910
  Receipt Date: 20130910
  Transmission Date: 20140515
  Serious: No
  Sender: FDA-Public Use
  Company Number: US-TARO-2013P1001307

PATIENT
  Age: 90 Year
  Sex: Male

DRUGS (3)
  1. WARFARIN SODIUM TABLETS USP 2.5MG [Suspect]
     Indication: CARDIAC FAILURE
  2. BABY ASPIRIN [Concomitant]
  3. UNSPECIFIED INSULIN [Suspect]
     Indication: DIABETES MELLITUS

REACTIONS (1)
  - Contusion [Not Recovered/Not Resolved]
